FAERS Safety Report 9359965 (Version 2)
Quarter: 2014Q2

REPORT INFORMATION
  Report Type: Spontaneous
  Country: US (occurrence: None)
  Receive Date: 20130608
  Receipt Date: 20140617
  Transmission Date: 20141212
  Serious: No
  Sender: FDA-Public Use
  Company Number: 2013CT000033

PATIENT
  Age: 62 Year
  Sex: Female
  Weight: 108.86 kg

DRUGS (12)
  1. KORLYM [Suspect]
     Indication: CUSHING^S SYNDROME
     Route: 048
  2. SPIRONOLACTONE [Concomitant]
  3. FUROSEMIDE [Concomitant]
  4. LIPITOR [Concomitant]
  5. METOPROLOL [Concomitant]
  6. GABAPENTIN [Concomitant]
  7. LOVAZA [Concomitant]
  8. LEXAPRO [Concomitant]
  9. AMLODIPINE [Concomitant]
  10. VITAMIN D [Concomitant]
  11. ASPIRIN [Concomitant]
  12. WELLBUTRIN [Concomitant]

REACTIONS (8)
  - Arthralgia [None]
  - Nausea [None]
  - Neck pain [None]
  - Abdominal pain upper [None]
  - Weight decreased [None]
  - Blood glucose decreased [None]
  - Fatigue [None]
  - Oedema peripheral [None]
